FAERS Safety Report 8777640 (Version 1)
Quarter: 2012Q4

REPORT INFORMATION
  Report Type: 
  Country: US (occurrence: US)
  Receive Date: 20120904
  Receipt Date: 20120904
  Transmission Date: 20130627
  Serious: Yes (Hospitalization, Other)
  Sender: FDA-Public Use
  Company Number: US-ELI_LILLY_AND_COMPANY-US201208009196

PATIENT
  Age: 41 Year
  Sex: Female

DRUGS (2)
  1. CYMBALTA [Suspect]
     Indication: DEPRESSION
     Dosage: UNK
     Dates: start: 200801, end: 200807
  2. SYNTHROID [Concomitant]

REACTIONS (6)
  - Pancreatitis chronic [Not Recovered/Not Resolved]
  - Bile duct obstruction [Unknown]
  - Gallbladder non-functioning [Unknown]
  - Cholecystectomy [Unknown]
  - Amylase increased [Unknown]
  - Lipase increased [Unknown]
